APPROVED DRUG PRODUCT: CHILDREN'S CETIRIZINE HYDROCHLORIDE ALLERGY
Active Ingredient: CETIRIZINE HYDROCHLORIDE
Strength: 10MG
Dosage Form/Route: TABLET, CHEWABLE;ORAL
Application: A078692 | Product #002
Applicant: SANDOZ INC
Approved: Feb 14, 2008 | RLD: No | RS: Yes | Type: OTC